FAERS Safety Report 9655004 (Version 2)
Quarter: 2013Q4

REPORT INFORMATION
  Report Type: Spontaneous
  Country: US (occurrence: US)
  Receive Date: 20131029
  Receipt Date: 20131029
  Transmission Date: 20140711
  Serious: No
  Sender: FDA-Public Use
  Company Number: US-PURDUE-USA-2012-0091957

PATIENT
  Sex: Male

DRUGS (6)
  1. OXYCONTIN (NDA 22-272) [Suspect]
     Indication: PAIN IN EXTREMITY
     Dosage: 20 MG, TID
  2. OXYCONTIN (NDA 22-272) [Suspect]
     Indication: MIGRAINE
     Dosage: 40 MG, TID
  3. DEMEROL [Concomitant]
     Indication: PAIN
     Dosage: UNK UNK, TID
     Route: 042
  4. SOMA [Concomitant]
     Indication: PAIN IN EXTREMITY
     Dosage: UNK
  5. SOMA [Concomitant]
     Indication: MIGRAINE
  6. PHENERGAN                          /00033001/ [Concomitant]
     Indication: PRODUCT USED FOR UNKNOWN INDICATION
     Dosage: UNK

REACTIONS (5)
  - Formication [Recovered/Resolved]
  - Drug withdrawal syndrome [Recovered/Resolved]
  - Nausea [Unknown]
  - Vomiting [Unknown]
  - Drug ineffective [Unknown]
